FAERS Safety Report 5087468-5 (Version None)
Quarter: 2006Q3

REPORT INFORMATION
  Report Type: 
  Country: None (occurrence: None)
  Receive Date: 20060824
  Receipt Date: 20060817
  Transmission Date: 20061208
  Serious: Yes (Other)
  Sender: FDA-Public Use
  Company Number: US-BRISTOL-MYERS SQUIBB COMPANY-13481254

PATIENT
  Age: 72 Year
  Sex: Female
  Weight: 76 kg

DRUGS (5)
  1. GLUCOPHAGE [Suspect]
     Indication: DIABETES MELLITUS NON-INSULIN-DEPENDENT
  2. BYETTA [Suspect]
     Indication: DIABETES MELLITUS NON-INSULIN-DEPENDENT
     Route: 058
     Dates: start: 20060201
  3. KEFLEX [Suspect]
     Indication: DENTAL DISORDER PROPHYLAXIS
     Dates: start: 20060201, end: 20060301
  4. AMARYL [Concomitant]
  5. PRANDIN [Concomitant]
     Dates: start: 20050101, end: 20060612

REACTIONS (9)
  - ABDOMINAL DISTENSION [None]
  - ASTHENIA [None]
  - BLOOD GLUCOSE DECREASED [None]
  - DYSPEPSIA [None]
  - FLATULENCE [None]
  - HEADACHE [None]
  - HYPOGLYCAEMIA [None]
  - NAUSEA [None]
  - WEIGHT DECREASED [None]
